FAERS Safety Report 8098218-2 (Version None)
Quarter: 2012Q1

REPORT INFORMATION
  Report Type: 
  Country: None (occurrence: None)
  Receive Date: 20120128
  Receipt Date: 20110719
  Transmission Date: 20120608
  Serious: No
  Sender: FDA-Public Use
  Company Number: US-ABBOTT-11P-163-0840236-00

PATIENT
  Age: 57 Year
  Sex: Female

DRUGS (5)
  1. MOTRIN [Concomitant]
     Indication: SWELLING
  2. AMLODIPINE [Concomitant]
     Indication: BLOOD PRESSURE
     Dosage: EVERY MORNING
     Route: 048
     Dates: start: 20110301
  3. HUMIRA [Suspect]
     Indication: PSORIASIS
     Dates: start: 20080801
  4. VICODIN [Concomitant]
     Indication: PRODUCT USED FOR UNKNOWN INDICATION
     Dosage: 5/325MG 1-3/DAY BASED ON ACTIVITY,AND HS
  5. MAXZIDE [Concomitant]
     Indication: BLOOD PRESSURE
     Dosage: LOWEST DOSE AVAILABLE
     Dates: end: 20110301

REACTIONS (2)
  - SKIN TIGHTNESS [None]
  - OEDEMA PERIPHERAL [None]
